FAERS Safety Report 20539559 (Version 1)
Quarter: 2022Q1

REPORT INFORMATION
  Report Type: Report from Study
  Country: IN (occurrence: IN)
  Receive Date: 20220302
  Receipt Date: 20220302
  Transmission Date: 20220423
  Serious: Yes (Death, Life-Threatening)
  Sender: FDA-Public Use
  Company Number: IN-BAYER-2021A241084

PATIENT
  Age: 79 Year
  Sex: Male
  Weight: 75 kg

DRUGS (14)
  1. XARELTO [Suspect]
     Active Substance: RIVAROXABAN
     Indication: Cerebrovascular accident prophylaxis
     Dosage: 15 MG, QD
     Route: 048
     Dates: start: 20210623, end: 20211011
  2. XARELTO [Suspect]
     Active Substance: RIVAROXABAN
     Indication: Atrial fibrillation
  3. XARELTO [Suspect]
     Active Substance: RIVAROXABAN
     Indication: Embolism arterial
  4. CLOPIDOGREL [Concomitant]
     Active Substance: CLOPIDOGREL BISULFATE
     Indication: Peripheral vascular disorder
     Dosage: 75 MG, QD
     Route: 048
     Dates: start: 20210622, end: 20211011
  5. FARONEM [Concomitant]
     Indication: Peripheral arterial occlusive disease
     Dosage: 200 MG, BID
     Route: 048
     Dates: start: 20210624, end: 20210629
  6. PANTOPRAZOLE [Concomitant]
     Active Substance: PANTOPRAZOLE
     Indication: Gastritis
     Dosage: 40 MG, QD
     Route: 048
     Dates: start: 20210624, end: 20210629
  7. DOLO 650 [Concomitant]
     Indication: Prophylaxis
     Dosage: 650 MG, BID
     Route: 048
     Dates: start: 20210622, end: 20210629
  8. OLMEZEST [Concomitant]
     Indication: Hypertension
     Dosage: 40 MG, QD
     Route: 048
     Dates: start: 202101, end: 20211011
  9. LIPITOR [Concomitant]
     Active Substance: ATORVASTATIN CALCIUM
     Indication: Hyperlipidaemia
     Dosage: 10 MG, QD
     Route: 048
     Dates: start: 20210623, end: 20211011
  10. POTKLOR [Concomitant]
     Indication: Hypokalaemia
     Dosage: 10 ML, BID
     Route: 048
     Dates: start: 20210623, end: 20210629
  11. CARDIZEM [Concomitant]
     Active Substance: DILTIAZEM HYDROCHLORIDE
     Indication: Myocardial ischaemia
     Dosage: 120 MG, QD
     Route: 048
     Dates: start: 202101, end: 20211011
  12. ALDACTONE [Concomitant]
     Active Substance: SPIRONOLACTONE
     Indication: Myocardial ischaemia
     Dosage: 25 MG, QD
     Route: 048
     Dates: start: 20210624, end: 20211011
  13. GLYCOMET TRIO [Concomitant]
     Indication: Diabetes mellitus
     Dosage: 500 MG, QD
     Route: 048
     Dates: start: 20210624, end: 20211011
  14. LANTUS [Concomitant]
     Active Substance: INSULIN GLARGINE
     Indication: Diabetes mellitus
     Dosage: 8 IU, QD
     Route: 058
     Dates: start: 20210624, end: 20211011

REACTIONS (1)
  - Death [Fatal]

NARRATIVE: CASE EVENT DATE: 20211012
